FAERS Safety Report 9549514 (Version 1)
Quarter: 2013Q3

REPORT INFORMATION
  Report Type: Spontaneous
  Country: US (occurrence: None)
  Receive Date: 20130919
  Receipt Date: 20130919
  Transmission Date: 20140515
  Serious: Yes (Hospitalization, Other)
  Sender: FDA-Public Use
  Company Number: US=ZYDUS-002231

PATIENT
  Age: 50 Year
  Sex: Female

DRUGS (2)
  1. LAMOTRIGINE [Suspect]
  2. CYCLOBENZAPRINE [Suspect]
     Dosage: 10.00 MG 3.DAYS

REACTIONS (2)
  - Drug reaction with eosinophilia and systemic symptoms [None]
  - Drug interaction [None]
